FAERS Safety Report 22105750 (Version 2)
Quarter: 2023Q2

REPORT INFORMATION
  Report Type: Other
  Country: GB (occurrence: GB)
  Receive Date: 20230317
  Receipt Date: 20230401
  Transmission Date: 20230721
  Serious: Yes (Hospitalization, Other)
  Sender: FDA-Public Use
  Company Number: GB-CELLTRION INC.-2022GB022294

PATIENT

DRUGS (205)
  1. RITUXIMAB [Suspect]
     Active Substance: RITUXIMAB
     Indication: B-cell lymphoma
     Dosage: RCHOP CHEMO - DOSE AND EXACT ROUTE NOT KNOWN.
     Route: 065
     Dates: end: 20220512
  2. RITUXIMAB [Suspect]
     Active Substance: RITUXIMAB
     Dosage: RCHOP CHEMO;
     Route: 065
     Dates: end: 20220512
  3. RITUXIMAB [Suspect]
     Active Substance: RITUXIMAB
     Dosage: MOST RECENT DOSE ON 12/MAY/2022
     Route: 065
     Dates: end: 20220512
  4. RITUXIMAB [Suspect]
     Active Substance: RITUXIMAB
     Dosage: UNK (RCHOP CHEMO - DOSE AND EXACT ROUTE NOT KNOWN.)
     Route: 065
     Dates: end: 20220512
  5. RITUXIMAB [Suspect]
     Active Substance: RITUXIMAB
     Dosage: RITUXIMAB
     Route: 065
     Dates: end: 20220512
  6. RITUXIMAB [Suspect]
     Active Substance: RITUXIMAB
     Dosage: UNK, CYCLIC (6 CYCLE, RCHOP CHEMO - DOSE); ; ADDITIONAL INFO: RCHOP CHEMO - DOSE AND EXACT ROUTE NOT
     Route: 065
     Dates: end: 20220512
  7. RITUXIMAB [Suspect]
     Active Substance: RITUXIMAB
     Dosage: RCHOP CHEMO - DOSE AND EXACT ROUTE NOT KNOWN.
     Route: 042
     Dates: end: 20220512
  8. RITUXIMAB [Suspect]
     Active Substance: RITUXIMAB
     Dosage: RCHOP CHEMO - DOSE AND EXACT ROUTE NOT KNOWN.UNK, CYCLIC (6 CYCLE, RCHOP CHEMO - DOSE)
     Route: 042
     Dates: end: 20220512
  9. RITUXIMAB [Suspect]
     Active Substance: RITUXIMAB
     Dosage: DOSE:1, CYCLE /RCHOP CHEMO - DOSE AND EXACT ROUTE NOT KNOWN. UNK, CYCLIC (6 CYCLE, RCHOP CHEMO - DOS
     Route: 042
     Dates: end: 20220512
  10. RITUXIMAB [Suspect]
     Active Substance: RITUXIMAB
     Dosage: UNK, CYCLIC (6 CYCLE, RCHOP CHEMO - DOSE); ; ADDITIONAL INFO: RCHOP CHEMO - DOSE AND EXACT ROUTE NOT
     Route: 065
     Dates: end: 20220512
  11. RITUXIMAB [Suspect]
     Active Substance: RITUXIMAB
     Dosage: CYCLIC (6 CYCLE, RCHOP CHEMO - DOSE); INTRAVENOUS DRIP
     Route: 041
     Dates: end: 20220512
  12. RITUXIMAB [Suspect]
     Active Substance: RITUXIMAB
     Dosage: RCHOP CHEMO - DOSE AND EXACT ROUTE NOT KNOWN. UNK, CYCLIC (6 CYCLE, RCHOP CHEMO - DOSE), MOST RECENT
     Route: 042
     Dates: end: 20220512
  13. RITUXIMAB [Suspect]
     Active Substance: RITUXIMAB
     Dosage: UNK, CYCLIC (6 CYCLE, RCHOP CHEMO - DOSE): INTRAVENOUS DRIP, RCHOP CHEMO - DOSE AND EXACT ROUTE NOT
     Route: 041
     Dates: end: 20220512
  14. RITUXIMAB [Suspect]
     Active Substance: RITUXIMAB
     Dosage: RCHOP CHEMO - DOSE AND EXACT ROUTE NOT KNOWN. UNK, CYCLIC (6 CYCLE, RCHOP CHEMO - DOSE)
     Route: 041
     Dates: end: 20220512
  15. RITUXIMAB [Suspect]
     Active Substance: RITUXIMAB
     Dosage: UNK UNK, CYCLIC
     Route: 042
     Dates: end: 20220512
  16. RITUXIMAB [Suspect]
     Active Substance: RITUXIMAB
     Dosage: CYCLIC (RCHOP CHEMO - DOSE AND EXACT ROUTE NOT KNOWN.UNK, CYCLIC (6 CYCLE, RCHOP CHEMO - DOSE); ; AD
     Route: 042
     Dates: end: 20220512
  17. RITUXIMAB [Suspect]
     Active Substance: RITUXIMAB
     Dosage: UNK; ; ADDITIONAL INFO: RCHOP CHEMO - DOSE AND EXACT ROUTE NOT KNOWN.
     Route: 065
     Dates: end: 20220512
  18. RITUXIMAB [Suspect]
     Active Substance: RITUXIMAB
     Dosage: UNK (RCHOP CHEMO); ; ADDITIONAL INFO: RCHOP CHEMO - DOSE AND EXACT ROUTE NOT KNOWN.
     Route: 065
     Dates: end: 20220512
  19. RITUXIMAB [Suspect]
     Active Substance: RITUXIMAB
     Dosage: UNK; ; ADDITIONAL INFO: RCHOP CHEMO - DOSE AND EXACT ROUTE NOT KNOWN.
     Route: 065
     Dates: end: 20220512
  20. RITUXIMAB [Suspect]
     Active Substance: RITUXIMAB
     Dosage: RITUXIMAB; ; ADDITIONAL INFO: RCHOP CHEMO - DOSE AND EXACT ROUTE NOT KNOWN.
     Route: 065
     Dates: end: 20220512
  21. RITUXIMAB [Suspect]
     Active Substance: RITUXIMAB
     Dosage: MOST RECENT DOSE ON 12/MAY/2022; ; ADDITIONAL INFO: RCHOP CHEMO - DOSE AND EXACT ROUTE NOT KNOWN.
     Route: 065
     Dates: end: 20220512
  22. RITUXIMAB [Suspect]
     Active Substance: RITUXIMAB
     Dosage: RCHOP CHEMO - DOSE AND EXACT ROUTE NOT KNOWN.; ;ADDITIONAL INFO: RCHOP CHEMO - DOSE AND EXACT ROUTE
     Route: 065
     Dates: end: 20220512
  23. RITUXIMAB [Suspect]
     Active Substance: RITUXIMAB
     Dosage: RCHOP CHEMO - DOSE AND EXACT ROUTE NOT KNOWN. UNK, CYCLIC (6 CYCLE, RCHOP CHEMO - DOSE), MOST RECENT
     Route: 042
     Dates: end: 20220512
  24. RITUXIMAB [Suspect]
     Active Substance: RITUXIMAB
     Dosage: CYCLIC (MOST RECENT DOSE ON (6 CYCLE, RCHOP CHEMO - DOSE)
     Route: 042
     Dates: end: 20220512
  25. RITUXIMAB [Suspect]
     Active Substance: RITUXIMAB
     Dosage: UNK, CYCLIC (6 CYCLE, RCHOP CHEMO - DOSE); INTRAVENOUS DRIP
     Route: 041
     Dates: end: 20220512
  26. RITUXIMAB [Suspect]
     Active Substance: RITUXIMAB
     Dosage: UNK (RCHOP CHEMO - DOSE AND EX)
     Route: 042
     Dates: end: 20220512
  27. RITUXIMAB [Suspect]
     Active Substance: RITUXIMAB
     Dosage: UNK (MOST RECENT DOSE ON 12 MAY 2022)
     Route: 065
     Dates: end: 20220512
  28. RITUXIMAB [Suspect]
     Active Substance: RITUXIMAB
     Dosage: UNK, CYCLIC (6 CYCLE, RCHOP CHEMO - DOSE)
     Route: 042
     Dates: end: 20220512
  29. RITUXIMAB [Suspect]
     Active Substance: RITUXIMAB
     Dosage: UNK, CYCLIC (6 CYCLE, RCHOP CHEMO - DOSE)
     Route: 042
     Dates: end: 20220512
  30. RITUXIMAB [Suspect]
     Active Substance: RITUXIMAB
     Dosage: UNK, CYCLIC (6 CYCLE, RCHOP CHEMO - DOSE)
     Route: 042
     Dates: end: 20220512
  31. RITUXIMAB [Suspect]
     Active Substance: RITUXIMAB
     Dosage: UNK (MOST RECENT DOSE ON 12/MAY/2022)
     Route: 065
     Dates: end: 20220512
  32. RITUXIMAB [Suspect]
     Active Substance: RITUXIMAB
     Dosage: UNK
     Route: 065
  33. RITUXIMAB [Suspect]
     Active Substance: RITUXIMAB
     Indication: B-cell lymphoma
     Dosage: UNK
     Dates: end: 20220512
  34. PREDNISOLONE [Suspect]
     Active Substance: PREDNISOLONE
     Indication: B-cell lymphoma
     Dosage: RCHOP CHEMO - DOSE AND EXACT ROUTE NOT KNOWN. ADDITIONAL INFO: ROUTE:UNKNOWN ROUTE:UNKNOWN ROUTE:UNK
     Route: 042
     Dates: end: 20220512
  35. PREDNISOLONE [Suspect]
     Active Substance: PREDNISOLONE
     Dosage: RCHOP CHEMO; ADDITIONAL INFO: ROUTE:UNKNOWN ROUTE:UNKNOWN ROUTE:UNKNOWN ROUTE:UNKNOWN ROUTE:UNKNOWNR
     Dates: end: 20220512
  36. PREDNISOLONE [Suspect]
     Active Substance: PREDNISOLONE
     Dosage: RCHOP CHEMO, MOST RECENT DOSE ON 12/MAY/2022
     Route: 065
     Dates: end: 20220512
  37. PREDNISOLONE [Suspect]
     Active Substance: PREDNISOLONE
     Dosage: UNK (RCHOP CHEMO - DOSE AND EXACT ROUTE NOT KNOWN.)
     Route: 065
     Dates: end: 20220512
  38. PREDNISOLONE [Suspect]
     Active Substance: PREDNISOLONE
     Dosage: UNK, CYCLIC (6 CYCLE, RCHOP CHEMO - DOSE, GASTRO RESISTANT
     Route: 065
     Dates: end: 20220512
  39. PREDNISOLONE [Suspect]
     Active Substance: PREDNISOLONE
     Dosage: UNK, CYCLIC (6 CYCLE, RCHOP CHEMO - DOSE, GASTRO RESISTANT)
     Dates: end: 20220512
  40. PREDNISOLONE [Suspect]
     Active Substance: PREDNISOLONE
     Dosage: UNK RCHOP CHEMO, 6 CYCLES- DOSE AND EXACT ROUTE NOT KNOWN; ; ADDITIONAL INFO: ROUTE:UNKNOWN ROUTE:UN
     Dates: end: 20220512
  41. PREDNISOLONE [Suspect]
     Active Substance: PREDNISOLONE
     Dosage: UNK, CYCLIC (6 CYCLE, RCHOP CHEMO - DOSE, GASTRO RESISTANT); ; ADDITIONAL INFO: ROUTE:UNKNOWN ROUTE:
     Dates: end: 20220512
  42. PREDNISOLONE [Suspect]
     Active Substance: PREDNISOLONE
     Dosage: ADDITIONAL INFO: ROUTE:UNKNOWN ROUTE:UNKNOWN ROUTE:UNKNOWN ROUTE:UNKNOWN ROUTE:UNKNOWNRCHOP CHEMO...
     Dates: end: 20220512
  43. PREDNISOLONE [Suspect]
     Active Substance: PREDNISOLONE
     Dosage: UNK, CYCLIC (6 CYCLE, RCHOP CHEMO - DOSE, GASTRO RESISTANT); ; ADDITIONAL INFO: ROUTE:UNKNOWN ROUTE:
     Dates: end: 20220512
  44. PREDNISOLONE [Suspect]
     Active Substance: PREDNISOLONE
     Indication: B-cell lymphoma
     Dosage: UNK, CYCLIC (6 CYCLE, RCHOP CHEMO - DOSE, GASTRO RESISTANT)
     Route: 065
     Dates: end: 20220512
  45. PREDNISOLONE [Suspect]
     Active Substance: PREDNISOLONE
     Dosage: UNK RCHOP CHEMO - DOSE AND EXACT ROUTE NOT KNOWN.
     Route: 065
     Dates: end: 20220512
  46. PREDNISOLONE [Suspect]
     Active Substance: PREDNISOLONE
     Dosage: UNK (RCHOP CHEMO - DOSE AND EXACT ROUTE NOT KNOWN)
     Route: 042
     Dates: end: 20220512
  47. PREDNISOLONE [Suspect]
     Active Substance: PREDNISOLONE
     Dosage: UNK (RCHOP CHEMO)
     Route: 042
     Dates: end: 20220512
  48. PREDNISOLONE [Suspect]
     Active Substance: PREDNISOLONE
     Dosage: UNK, CYCLIC (6 CYCLE, RCHOP CHEMO - DOSE, GASTRO RESISTANT)
     Route: 042
     Dates: end: 20220512
  49. PREDNISOLONE [Suspect]
     Active Substance: PREDNISOLONE
     Dosage: UNK RCHOP CHEMO - DOSE AND EXACT ROUTE NOT KNOWN
     Route: 042
     Dates: end: 20220512
  50. PREDNISOLONE [Suspect]
     Active Substance: PREDNISOLONE
     Indication: B-cell lymphoma
     Dosage: RCHOP CHEMO, MOST RECENT DOSE ON 12-MAY-2022, ADDITIONAL INFORMATION ON DRUG (FREE TEXT): RCHOP CHEM
     Dates: end: 20220512
  51. PREDNISOLONE [Suspect]
     Active Substance: PREDNISOLONE
     Dosage: UNK RCHOP CHEMO - DOSE AND EXACT ROUTE NOT KNOWN, ADDITIONAL INFORMATION ON DRUG (FREE TEXT): RCHOP
     Dates: end: 20220512
  52. PREDNISOLONE [Suspect]
     Active Substance: PREDNISOLONE
     Dosage: RCHOP CHEMO
     Dates: end: 20220512
  53. PREDNISOLONE [Suspect]
     Active Substance: PREDNISOLONE
     Dosage: UNK, CYCLIC (6 CYCLE, RCHOP CHEMO - DOSE, GASTRO RESISTANT)
     Dates: end: 20220512
  54. PREDNISOLONE [Suspect]
     Active Substance: PREDNISOLONE
     Dosage: CYCLIC,6 CYCLE, RCHOP CHEMO-DOSE,GASTRO RESISTANT (RCHOP CHEMO - DOSE AND EXACT ROUTE NOT KNOWN.)
     Route: 042
     Dates: end: 20220512
  55. PREDNISOLONE [Suspect]
     Active Substance: PREDNISOLONE
     Dosage: UNK (RCHOP CHEMO, 6 CYCLES- DOSE AND EXACT ROUTE NOT KNOWN)
     Dates: end: 20220512
  56. PREDNISOLONE [Suspect]
     Active Substance: PREDNISOLONE
     Dosage: UNK UNK, CYCLIC (6 CYCLE, RCHOP CHEMO - DOSE AND EXACT ROUTE NOT KNOWN, CYCLIC (6 CYCLE,
     Route: 065
     Dates: end: 20220512
  57. PREDNISOLONE [Suspect]
     Active Substance: PREDNISOLONE
     Dosage: UNK UNK, CYCLIC (6 CYCLE, RCHOP CHEMO - DOSE)
     Route: 065
     Dates: end: 20220512
  58. PREDNISOLONE [Suspect]
     Active Substance: PREDNISOLONE
     Dosage: UNK UNK, CYCLIC (6 CYCLE, RCHOP CHEMO - DOSE AND EXACT ROUTE NOT KNOWN)
     Route: 065
     Dates: end: 20220512
  59. PREDNISOLONE [Suspect]
     Active Substance: PREDNISOLONE
     Dosage: UNK UNK, CYCLIC (6 CYCLE, RCHOP CHEMO - DOSE)
     Route: 065
     Dates: end: 20220512
  60. PREDNISOLONE [Suspect]
     Active Substance: PREDNISOLONE
     Dosage: UNK UNK, CYCLIC (6 CYCLE, RCHOP CHEMO - DOSE)
     Route: 065
     Dates: end: 20220512
  61. PREDNISOLONE [Suspect]
     Active Substance: PREDNISOLONE
     Dosage: UNK, CYCLIC (1 CYCLICAL, 6 CYCLE, RCHOP CHEMO-DOSE, GASTRO)
     Route: 042
  62. PREDNISOLONE [Suspect]
     Active Substance: PREDNISOLONE
     Dosage: UNK UNK, CYCLIC (6 CYCLE, RCHOP CHEMO - DOSE, GASTRO RESISTANT)
     Dates: end: 20220512
  63. PREDNISOLONE [Suspect]
     Active Substance: PREDNISOLONE
     Dosage: UNK. UNK, CYCLIC
     Dates: end: 20220512
  64. PREDNISOLONE [Suspect]
     Active Substance: PREDNISOLONE
     Dosage: UNK (RCHOP CHEMO - DOSE AND EXACT R)
  65. PREDNISOLONE [Suspect]
     Active Substance: PREDNISOLONE
     Dosage: 6 CYCLE, RCHOP CHEMO - DOSE, GASTRO RESISTANT
     Dates: end: 20220512
  66. PREDNISOLONE [Suspect]
     Active Substance: PREDNISOLONE
     Dosage: RCHOP CHEMO - DOSE AND EXACT ROUTE NOT KNOWNCYCLIC (6 CYCLE, RCHOP CHEMO - DOSE, GASTRO RESISTANT
     Dates: end: 20220512
  67. PREDNISOLONE [Suspect]
     Active Substance: PREDNISOLONE
     Dosage: CYCLIC (6 CYCLE, RCHOP CHEMO - DOSE)
     Dates: end: 20220512
  68. CYCLOPHOSPHAMIDE [Suspect]
     Active Substance: CYCLOPHOSPHAMIDE
     Indication: B-cell lymphoma
     Dosage: RCHOP CHEMO - DOSE AND EXACT ROUTE NOT KNOWN.; UNK UNK, CYCLIC (6 CYCLE, RCHOP CHEMO - DOSE)
     Route: 065
     Dates: end: 20220512
  69. CYCLOPHOSPHAMIDE [Suspect]
     Active Substance: CYCLOPHOSPHAMIDE
     Dosage: RCHOP CHEMO; ;
     Route: 065
     Dates: end: 20220512
  70. CYCLOPHOSPHAMIDE [Suspect]
     Active Substance: CYCLOPHOSPHAMIDE
     Dosage: RCHOP CHEMO, MOST RECENT DOSE ON 12/MAY/2022
     Route: 065
  71. CYCLOPHOSPHAMIDE [Suspect]
     Active Substance: CYCLOPHOSPHAMIDE
     Dosage: UNK (RCHOP CHEMO - DOSE AND EXACT ROUTE NOT KNOWN)
     Route: 065
     Dates: end: 20220512
  72. CYCLOPHOSPHAMIDE [Suspect]
     Active Substance: CYCLOPHOSPHAMIDE
     Dosage: RCHOP CHEMO;
     Route: 065
     Dates: end: 20220512
  73. CYCLOPHOSPHAMIDE [Suspect]
     Active Substance: CYCLOPHOSPHAMIDE
     Dosage: UNK, CYCLIC (6 CYCLE, RCHOP CHEMO - DOSE)
     Route: 065
     Dates: end: 20220512
  74. CYCLOPHOSPHAMIDE [Suspect]
     Active Substance: CYCLOPHOSPHAMIDE
     Dosage: UNK, CYCLIC (6 CYCLE, RCHOP CHEMO - DOSE
     Route: 065
     Dates: end: 20220512
  75. CYCLOPHOSPHAMIDE [Suspect]
     Active Substance: CYCLOPHOSPHAMIDE
     Dosage: RCHOP CHEMO - DOSE AND EXACT ROUTE NOT KNOWN, CYCLIC (6 CYCLE, RCHOP CHEMO - DOSE)
     Dates: end: 20220512
  76. CYCLOPHOSPHAMIDE [Suspect]
     Active Substance: CYCLOPHOSPHAMIDE
     Dosage: RCHOP CHEMO - DOSE AND EXACT ROUTE NOT KNOWN CYCLIC (6 CYCLE, RCHOP CHEMO - DOSE)
     Dates: end: 20220512
  77. CYCLOPHOSPHAMIDE [Suspect]
     Active Substance: CYCLOPHOSPHAMIDE
     Dosage: DOSE 1, CYCLE/RCHOP CHEMO - DOSE AND EXACT ROUTE NOT KNOWN CYCLIC (6 CYCLE, RCHOP CHEMO - DOSE)
     Dates: end: 20220512
  78. CYCLOPHOSPHAMIDE [Suspect]
     Active Substance: CYCLOPHOSPHAMIDE
     Dosage: UNK, CYCLIC (6 CYCLE, RCHOP CHEMO - DOSE)
     Dates: end: 20220512
  79. CYCLOPHOSPHAMIDE [Suspect]
     Active Substance: CYCLOPHOSPHAMIDE
     Dosage: UNK, CYCLIC (6 CYCLE, RCHOP CHEMO - DOSE)
     Dates: end: 20220512
  80. CYCLOPHOSPHAMIDE [Suspect]
     Active Substance: CYCLOPHOSPHAMIDE
     Dosage: RCHOP CHEMO - DOSE AND EXACT ROUTE NOT KNOWN CYCLIC (6 CYCLE, RCHOP CHEMO - DOSE), RCHOP CHEMO, MOST
     Dates: end: 20220512
  81. CYCLOPHOSPHAMIDE [Suspect]
     Active Substance: CYCLOPHOSPHAMIDE
     Dosage: UNK, CYCLIC (6 CYCLE, RCHOP CHEMO - DOSE), RCHOP CHEMO - DOSE AND EXACT ROUTE NOT KNOWN
     Route: 065
     Dates: end: 20220512
  82. CYCLOPHOSPHAMIDE [Suspect]
     Active Substance: CYCLOPHOSPHAMIDE
     Dosage: RCHOP CHEMO - DOSE AND EXACT ROUTE NOT KNOWN CYCLIC (6 CYCLE, RCHOP CHEMO - DOSE)
     Dates: end: 20220512
  83. CYCLOPHOSPHAMIDE [Suspect]
     Active Substance: CYCLOPHOSPHAMIDE
     Dosage: UNK, CYCLIC (6 CYCLE, RCHOP CHEMO - DOSE), RCHOP CHEMO - DOSE AND EXACT ROUTE NOT KNOWN. RCHOP CHEMO
     Dates: end: 20220512
  84. CYCLOPHOSPHAMIDE [Suspect]
     Active Substance: CYCLOPHOSPHAMIDE
     Indication: B-cell lymphoma
     Dosage: UNK UNK, CYCLIC (RCHOP CHEMO, MOST RECENT DOSE ON 12 MAY 2022); RCHOP CHEMO, MOST RECENT DOSE ON 12/
     Dates: end: 20220512
  85. CYCLOPHOSPHAMIDE [Suspect]
     Active Substance: CYCLOPHOSPHAMIDE
     Indication: B-cell lymphoma
     Dosage: UNK UNK, CYCLIC (6 CYCLE, RCHOP CHEMO - DOSE); RCHOP CHEMO - DOSE AND EXACT ROUTE NOT KNOWN, CYCLIC
     Dates: end: 20220512
  86. CYCLOPHOSPHAMIDE [Suspect]
     Active Substance: CYCLOPHOSPHAMIDE
     Dosage: UNK UNK, CYCLIC (RCHOP CHEMO - DOSE AND EXACT ROUTE N); RCHOP CHEMO - DOSE AND EXACT ROUTE NOT KNOWN
  87. CYCLOPHOSPHAMIDE [Suspect]
     Active Substance: CYCLOPHOSPHAMIDE
     Dosage: RCHOP CHEMO - DOSE AND EXACT ROUTE NOT KNOWN.; UNK UNK, CYCLIC (6 CYCLE, RCHOP CHEMO - DOSE)
     Route: 065
     Dates: end: 20220512
  88. CYCLOPHOSPHAMIDE [Suspect]
     Active Substance: CYCLOPHOSPHAMIDE
     Dosage: RCHOP CHEMO - DOSE AND EXACT ROUTE NOT KNOWN.; UNK UNK, CYCLIC (RCHOP CHEMO, MOST RECENT DOSE ON 12
     Route: 065
  89. CYCLOPHOSPHAMIDE [Suspect]
     Active Substance: CYCLOPHOSPHAMIDE
     Dosage: RCHOP CHEMO - DOSE AND EXACT ROUTE NOT KNOWN.; UNK UNK, CYCLIC (6 CYCLE, RCHOP CHEMO - DOSE)
     Route: 065
     Dates: end: 20220512
  90. CYCLOPHOSPHAMIDE [Suspect]
     Active Substance: CYCLOPHOSPHAMIDE
     Dosage: RCHOP CHEMO - DOSE AND EXACT ROUTE NOT KNOWN.; UNK UNK, CYCLIC (RCHOP CHEMO - DOSE AND EXACT ROUTE N
     Route: 065
     Dates: end: 20220512
  91. CYCLOPHOSPHAMIDE [Suspect]
     Active Substance: CYCLOPHOSPHAMIDE
     Dosage: RCHOP CHEMO - DOSE AND EXACT ROUTE NOT KNOWN.; UNK UNK, CYCLIC (RCHOP CHEMO)
     Route: 065
     Dates: end: 20220512
  92. CYCLOPHOSPHAMIDE [Suspect]
     Active Substance: CYCLOPHOSPHAMIDE
     Dosage: RCHOP CHEMO - DOSE AND EXACT ROUTE NOT KNOWN.; UNK UNK, CYCLIC (6 CYCLE, RCHOP CHEMO - DOSE)
     Route: 065
     Dates: end: 20220512
  93. CYCLOPHOSPHAMIDE [Suspect]
     Active Substance: CYCLOPHOSPHAMIDE
     Dosage: RCHOP CHEMO - DOSE AND EXACT ROUTE NOT KNOWN.; UNK UNK, CYCLIC (6 CYCLE, RCHOP CHEMO - DOSE)
     Route: 065
     Dates: end: 20220512
  94. CYCLOPHOSPHAMIDE [Suspect]
     Active Substance: CYCLOPHOSPHAMIDE
     Dosage: RCHOP CHEMO - DOSE AND EXACT ROUTE NOT KNOWN; UNK UNK, CYCLIC (6 CYCLE, RCHOP CHEMO - DOSE)
     Route: 065
     Dates: end: 20220512
  95. CYCLOPHOSPHAMIDE [Suspect]
     Active Substance: CYCLOPHOSPHAMIDE
     Dosage: RCHOP CHEMO - DOSE AND EXACT ROUTE NOT KNOWN.; UNK UNK, CYCLIC (6 CYCLE, RCHOP CHEMO - DOSE)
     Route: 065
     Dates: end: 20220512
  96. CYCLOPHOSPHAMIDE [Suspect]
     Active Substance: CYCLOPHOSPHAMIDE
     Dosage: RCHOP CHEMO - DOSE AND EXACT ROUTE NOT KNOWN.; UNK UNK, CYCLIC (RCHOP CHEMO)
     Dates: end: 20220512
  97. VINCRISTINE [Suspect]
     Active Substance: VINCRISTINE
     Indication: B-cell lymphoma
     Dosage: RCHOP CHEMO - DOSE AND EXACT ROUTE NOT KNOWN.
     Route: 065
     Dates: end: 20220512
  98. VINCRISTINE [Suspect]
     Active Substance: VINCRISTINE
     Dosage: RCHOP CHEMO;
     Route: 065
     Dates: end: 20220512
  99. VINCRISTINE [Suspect]
     Active Substance: VINCRISTINE
     Dosage: RCHOP CHEMO, MOST RECENT DOSE ON 12/MAY/2022
     Route: 065
     Dates: end: 20220512
  100. VINCRISTINE [Suspect]
     Active Substance: VINCRISTINE
     Dosage: UNK (RCHOP CHEMO - DOSE AND EXACT ROUTE NOT KNOWN.)
     Route: 065
     Dates: end: 20220512
  101. VINCRISTINE [Suspect]
     Active Substance: VINCRISTINE
     Dosage: RCHOP CHEMO
     Route: 065
     Dates: end: 20220512
  102. VINCRISTINE [Suspect]
     Active Substance: VINCRISTINE
     Dosage: UNK, CYCLIC (6 CYCLE, RCHOP CHEMO - DOSE, GASTRO RESISTANT)
     Route: 065
     Dates: end: 20220512
  103. VINCRISTINE [Suspect]
     Active Substance: VINCRISTINE
     Dosage: UNK, CYCLIC (6 CYCLE, RCHOP CHEMO - DOSE, GASTRO RESISTANT
     Route: 065
     Dates: end: 20220512
  104. VINCRISTINE [Suspect]
     Active Substance: VINCRISTINE
     Dosage: RCHOP CHEMO - DOSE AND EXACT ROUTE NOT KNOWN.CYCLIC (6 CYCLE, RCHOP CHEMO - DOSE, GASTRO RESISTANT)
     Dates: end: 20220512
  105. VINCRISTINE [Suspect]
     Active Substance: VINCRISTINE
     Dosage: DOSE:1, CYCLE/ RCHOP CHEMO - DOSE AND EXACT ROUTE NOT KNOWN CYCLIC (6 CYCLE, RCHOP CHEMO - DOSE, GAS
     Dates: end: 20220512
  106. VINCRISTINE [Suspect]
     Active Substance: VINCRISTINE
     Dosage: UNK UNK, CYCLIC (6 CYCLE RCHOP CHEMO DOSE, GASTRO RESISTANT MOST RECENT DOSE ON 12/MAY/2022
     Dates: end: 20220512
  107. VINCRISTINE [Suspect]
     Active Substance: VINCRISTINE
     Dosage: UNK, CYCLIC (6 CYCLE, RCHOP CHEMO - DOSE, GASTRO RESISTANT)
     Dates: end: 20220512
  108. VINCRISTINE [Suspect]
     Active Substance: VINCRISTINE
     Dosage: CYCLIC (6 CYCLE, RCHOP CHEMO - DOSE, GASTRO RESISTANT)
     Route: 065
     Dates: end: 20220512
  109. VINCRISTINE [Suspect]
     Active Substance: VINCRISTINE
     Dosage: RCHOP CHEMO - DOSE AND EXACT ROUTE NOT KNOWN. CYCLIC (6 CYCLE, RCHOP CHEMO - DOSE, GASTRO RESISTANT)
     Route: 065
     Dates: end: 20220512
  110. VINCRISTINE [Suspect]
     Active Substance: VINCRISTINE
     Dosage: UNK, CYCLIC (6 CYCLE, RCHOP CHEMO - DOSE, GASTRORESITANT), RCHOP CHEMO - DOSE AND EXACT ROUTE NOT KN
     Route: 065
     Dates: end: 20220512
  111. VINCRISTINE [Suspect]
     Active Substance: VINCRISTINE
     Dosage: RCHOP CHEMO - DOSE AND EXACT ROUTE NOT KNOWN. CYCLIC (6 CYCLE, RCHOP CHEMO - DOSE, GASTRO RESISTANT)
     Route: 065
     Dates: end: 20220512
  112. VINCRISTINE [Suspect]
     Active Substance: VINCRISTINE
     Dosage: UNK, CYCLIC (6 CYCLE, RCHOP CHEMO - DOSE, GASTRORESITANT), RCHOP CHEMO - DOSE AND EXACT ROUTE NOT KN
     Route: 065
     Dates: end: 20220512
  113. VINCRISTINE [Suspect]
     Active Substance: VINCRISTINE
     Indication: B-cell lymphoma
     Dosage: UNK, CYCLIC (6 CYCLE, RCHOP CHEMO - DOSE, GASTRO RESISTANT) RCHOP CHEMO - DOSE AND EXACT ROUTE NOT K
     Dates: end: 20220512
  114. VINCRISTINE [Suspect]
     Active Substance: VINCRISTINE
     Indication: B-cell lymphoma
     Dosage: RCHOP CHEMO; ; ADDITIONAL INFO: RCHOP CHEMO - DOSE AND EXACT ROUTE NOT KNOWN.
     Dates: end: 20220512
  115. VINCRISTINE [Suspect]
     Active Substance: VINCRISTINE
     Dosage: DOSE:1, CYCLE/ RCHOP CHEMO - DOSE AND EXACT ROUTE NOT KNOWN CYCLIC (6 CYCLE, RCHOP CHEMO - DOSE, ...
     Dates: end: 20220512
  116. VINCRISTINE [Suspect]
     Active Substance: VINCRISTINE
     Dosage: RCHOP CHEMO - DOSE AND EXACT ROUTE NOT KNOWN.; ; ADDITIONAL INFO: RCHOP CHEMO - DOSE AND EXACT ROUTE
     Dates: end: 20220512
  117. VINCRISTINE [Suspect]
     Active Substance: VINCRISTINE
     Dosage: UNK, CYCLIC (6 CYCLE, RCHOP CHEMO - DOSE, GASTRO RESISTANT), MOST RECENT DOSE ON 12/MAY/2022; ; ADDI
     Dates: end: 20220512
  118. VINCRISTINE [Suspect]
     Active Substance: VINCRISTINE
     Dosage: UNK (RCHOP CHEMO - DOSE AND EXACT ROUTE NOT KNOWN.); ; ADDITIONAL INFO: RCHOP CHEMO - DOSE AND EXACT
     Dates: end: 20220512
  119. VINCRISTINE [Suspect]
     Active Substance: VINCRISTINE
     Dosage: RCHOP CHEMO; ; ADDITIONAL INFO: RCHOP CHEMO - DOSE AND EXACT ROUTE NOT KNOWN.
     Dates: end: 20220512
  120. VINCRISTINE [Suspect]
     Active Substance: VINCRISTINE
     Dosage: UNK (RCHOP CHEMO - DOSE AND EXACT ROUTE NOT KNOWN. CYCLIC (6 CYCLE, RCHOP CHEMO - DOSE, GASTRO RE...
     Dates: end: 20220512
  121. VINCRISTINE [Suspect]
     Active Substance: VINCRISTINE
     Dosage: CYCLIC (6 CYCLE, RCHOP CHEMO - DOSE, GASTRO RESISTANT); ; ADDITIONAL INFO: RCHOP CHEMO - DOSE AND EX
     Dates: end: 20220512
  122. VINCRISTINE [Suspect]
     Active Substance: VINCRISTINE
     Dosage: RCHOP CHEMO; ; ADDITIONAL INFO: RCHOP CHEMO - DOSE AND EXACT ROUTE NOT KNOWN.
     Dates: end: 20220512
  123. VINCRISTINE [Suspect]
     Active Substance: VINCRISTINE
     Dosage: UNK, CYCLIC (6 CYCLE, RCHOP CHEMO - DOSE, GASTRO RESISTANT), MOST RECENT DOSE ON 12/MAY/2022; ; ADDI
     Dates: end: 20220512
  124. VINCRISTINE [Suspect]
     Active Substance: VINCRISTINE
     Dosage: UNK, CYCLIC (6 CYCLE, RCHOP CHEMO - DOSE, GASTRO RESISTANT), MOST RECENT DOSE ON 12/MAY/2022; ; ADDI
     Dates: end: 20220512
  125. VINCRISTINE [Suspect]
     Active Substance: VINCRISTINE
     Dosage: RCHOP CHEMO, MOST RECENT DOSE ON 12/MAY/2022; ; ADDITIONAL INFO: RCHOP CHEMO - DOSE AND EXACT ROUTE
     Dates: end: 20220512
  126. VINCRISTINE [Suspect]
     Active Substance: VINCRISTINE
     Dosage: UNK, CYCLIC (6 CYCLE, RCHOP CHEMO - DOSE, GASTRO RESISTANT), MOST RECENT DOSE ON 12/MAY/2022; ; ADDI
     Dates: end: 20220512
  127. VINCRISTINE [Suspect]
     Active Substance: VINCRISTINE
     Dosage: UNK, CYCLIC (6 CYCLE, RCHOP CHEMO - DOSE, GASTRO RESISTANT);
     Dates: end: 20220512
  128. VINCRISTINE [Suspect]
     Active Substance: VINCRISTINE
     Dosage: UNK, CYCLIC (6 CYCLE, RCHOP CHEMO - DOSE, GASTRO RESISTANT);
     Dates: end: 20220512
  129. VINCRISTINE [Suspect]
     Active Substance: VINCRISTINE
     Indication: B-cell lymphoma
     Dosage: UNK, CYCLIC (6 CYCLE, RCHOP CHEMO - DOSE, GASTRO RESISTANT)
     Dates: end: 20220512
  130. VINCRISTINE [Suspect]
     Active Substance: VINCRISTINE
     Dosage: UNK UNK, CYCLIC (6 CYCLE, RCHOP CHEMO - DOSE)
     Route: 065
     Dates: end: 20220512
  131. VINCRISTINE [Suspect]
     Active Substance: VINCRISTINE
     Dosage: UNK UNK, CYCLIC ((6 CYCLE RCHOP CHEMO DOSE)
     Route: 065
     Dates: end: 20220512
  132. VINCRISTINE [Suspect]
     Active Substance: VINCRISTINE
     Dosage: UNK, CYCLIC (6 CYCLE RCHOP CHEMO DOSE0)
     Route: 065
     Dates: end: 20220512
  133. VINCRISTINE [Suspect]
     Active Substance: VINCRISTINE
     Dosage: UNK (RCHOP CHEMO - DOSE AND EXACT ROUTE NOT KNOWN)
     Route: 065
     Dates: end: 20220512
  134. VINCRISTINE [Suspect]
     Active Substance: VINCRISTINE
     Dosage: UNK, CYCLIC (1, CYCLICAL, 6 CYCLE, RCHOP CHEMO-DOSE,GASTRO)
     Route: 065
     Dates: end: 20220512
  135. VINCRISTINE [Suspect]
     Active Substance: VINCRISTINE
     Dosage: UNK (RCHOP CHEMO - DOSE AND EXACT ROUTE NOT KNOWN)
     Route: 065
     Dates: end: 20220512
  136. PREDNISOLONE [Suspect]
     Active Substance: PREDNISOLONE
     Indication: B-cell lymphoma
     Dosage: RCHOP CHEMO - DOSE AND EXACT ROUTE NOT KNOWN.
     Route: 065
     Dates: end: 20220512
  137. PREDNISOLONE [Suspect]
     Active Substance: PREDNISOLONE
     Dosage: UNK UNK, CYCLIC (6 CYCLE, RCHOP CHEMO - DOSE, GASTRO RESISTANT)
     Dates: end: 20220512
  138. PREDNISOLONE [Suspect]
     Active Substance: PREDNISOLONE
     Dosage: RCHOP CHEMO - DOSE AND EXACT ROUTE NOT KNOWN, CYCLIC (6 CYCLE, RCHOP CHEMO - DOSE, GASTRO RESISTANT)
     Route: 042
     Dates: end: 20220512
  139. PREDNISOLONE [Suspect]
     Active Substance: PREDNISOLONE
     Dosage: UNK UNK, CYCLIC (6 CYCLE, RCHOP CHEMO - DOSE, GASTRO RESISTANT)
     Dates: end: 20220512
  140. PREDNISOLONE [Suspect]
     Active Substance: PREDNISOLONE
     Dosage: DOSE:1, CYCLE/ RCHOP CHEMO - DOSE AND EXACT ROUTE NOT KNOWN CYCLIC (6 CYCLE, RCHOP CHEMO - DOSE, GAS
     Dates: end: 20220512
  141. PREDNISOLONE [Suspect]
     Active Substance: PREDNISOLONE
     Dosage: UNK UNK, CYCLIC (6 CYCLE, RCHOP CHEMO - DOSE, GASTRO RESISTANT)
     Dates: end: 20220512
  142. PREDNISOLONE [Suspect]
     Active Substance: PREDNISOLONE
     Dosage: RCHOP CHEMO - DOSE AND EXACT ROUTE NOT KNOWN CYCLIC (6 CYCLE, RCHOP CHEMO - DOSE, GASTRO RESISTANT)
     Dates: end: 20220512
  143. PREDNISOLONE [Suspect]
     Active Substance: PREDNISOLONE
     Dosage: RCHOP CHEMO - DOSE AND EXACT ROUTE NOT KNOWN CYCLIC (6 CYCLE, RCHOP CHEMO - DOSE, GASTRO RESISTANT),
     Dates: end: 20220512
  144. PREDNISOLONE [Suspect]
     Active Substance: PREDNISOLONE
     Indication: B-cell lymphoma
     Dosage: RCHOP CHEMO - DOSE AND EXACT ROUTE NOT KNOWN CYCLIC (6 CYCLE, RCHOP CHEMO - DOSE, GASTRORESISTANT),
     Route: 042
     Dates: end: 20220512
  145. PREDNISOLONE [Suspect]
     Active Substance: PREDNISOLONE
     Dosage: UNK UNK, CYCLIC (6 CYCLE, RCHOP CHEMO - DOSE, GASTRO RESISTANT) - MOST RECENT DOSE ON 12 MAY 2022
     Dates: end: 20220512
  146. PREDNISOLONE [Suspect]
     Active Substance: PREDNISOLONE
     Dosage: UNK (RCHOP CHEMO - DOSE AND EXACT ROUTE NOT KNOWN, CYCLIC (6 CYCLE, RCHOP CHEMO - DOSE, GASTRO RESIS
     Dates: end: 20220512
  147. PREDNISOLONE [Suspect]
     Active Substance: PREDNISOLONE
     Dosage: RCHOP CHEMO - DOSE AND EXACT ROUTE NOT KNOWN CYCLIC (6 CYCLE, RCHOP CHEMO - DOSE, GASTRO RESISTANT)
     Dates: end: 20220512
  148. PREDNISOLONE [Suspect]
     Active Substance: PREDNISOLONE
     Dosage: UNK UNK, CYCLIC (6 CYCLE, RCHOP CHEMO - DOSE, GASTRO RESISTANT)
     Route: 065
     Dates: end: 20220512
  149. PREDNISOLONE [Suspect]
     Active Substance: PREDNISOLONE
     Dosage: UNK UNK, CYCLIC (6 CYCLE, RCHOP CHEMO - DOSE, GASTRO RESISTANT)
     Route: 065
     Dates: end: 20220512
  150. PREDNISOLONE [Suspect]
     Active Substance: PREDNISOLONE
     Dosage: UNK UNK, CYCLIC
     Route: 065
     Dates: end: 20220512
  151. PREDNISOLONE [Suspect]
     Active Substance: PREDNISOLONE
     Dosage: UNK (RCHOP CHEMO - DOSE AND EXACT R)
     Route: 065
     Dates: end: 20220512
  152. PREDNISOLONE [Suspect]
     Active Substance: PREDNISOLONE
     Dosage: UNK UNK, CYCLIC (6 CYCLE, RCHOP CHEMO - DOSE)
     Route: 065
     Dates: end: 20220512
  153. PREDNISOLONE [Suspect]
     Active Substance: PREDNISOLONE
     Dosage: UNK UNK, CYCLIC (6 CYCLE, RCHOP CHEMO - DOSE, GASTRO RESISTAN)
     Route: 065
     Dates: end: 20220512
  154. PREDNISOLONE [Suspect]
     Active Substance: PREDNISOLONE
     Dosage: UNK UNK, CYCLIC
     Route: 065
     Dates: end: 20220512
  155. PREDNISOLONE [Suspect]
     Active Substance: PREDNISOLONE
     Indication: B-cell lymphoma
     Dosage: UNK UNK, CYCLIC (6 CYCLE, RCHOP CHEMO - DOSE, GASTRO RESISTANT)
     Dates: end: 20220512
  156. PREDNISOLONE [Suspect]
     Active Substance: PREDNISOLONE
     Indication: B-cell lymphoma
     Dosage: RCHOP CHEMO - DOSE AND EXACT ROUTE NOT KNOWN CYCLIC (6 CYCLE, RCHOP CHEMO - DOSE, GASTRO RESISTANT)
     Dates: end: 20220512
  157. DOXORUBICIN [Suspect]
     Active Substance: DOXORUBICIN
     Indication: B-cell lymphoma
     Dosage: RCHOP CHEMO - DOSE AND EXACT ROUTE NOT KNOWN.
     Route: 065
     Dates: end: 20220512
  158. DOXORUBICIN [Suspect]
     Active Substance: DOXORUBICIN
     Dosage: RCHOP CHEMO; ;
     Route: 065
     Dates: end: 20220512
  159. DOXORUBICIN [Suspect]
     Active Substance: DOXORUBICIN
     Dosage: MOST RECENT DOSE ON 12/MAY/2022
     Route: 065
     Dates: end: 20220512
  160. DOXORUBICIN [Suspect]
     Active Substance: DOXORUBICIN
     Dosage: RCHOP CHEMO
     Route: 065
     Dates: end: 20220512
  161. DOXORUBICIN [Suspect]
     Active Substance: DOXORUBICIN
     Dosage: UNK, CYCLIC (6 CYCLE, RCHOP CHEMO - DOSE)
     Route: 065
     Dates: end: 20220512
  162. DOXORUBICIN [Suspect]
     Active Substance: DOXORUBICIN
     Dosage: UNK, CYCLIC (6 CYCLE, RCHOP CHEMO - DOSE) DOSAGE FORM: INJECTION
     Route: 065
     Dates: end: 20220512
  163. DOXORUBICIN [Suspect]
     Active Substance: DOXORUBICIN
     Dosage: UNK (RCHOP CHEMO - DOSE AND EXACT ROUTE NOT KNOWN)
     Dates: end: 20220512
  164. DOXORUBICIN [Suspect]
     Active Substance: DOXORUBICIN
     Dosage: UNK UNK, CYCLIC
     Dates: end: 20220512
  165. DOXORUBICIN [Suspect]
     Active Substance: DOXORUBICIN
     Dosage: DOSE:1, CYCLE/ RCHOP CHEMO - DOSE AND EXACT ROUTE NOT KNOWN CYCLIC (6 CYCLE, RCHOP CHEMO - DOSE, GAS
     Dates: end: 20220512
  166. DOXORUBICIN [Suspect]
     Active Substance: DOXORUBICIN
     Dosage: UNK UNK, CYCLIC (6 CYCLE RCHOP CHEMO- DOSE AND ROUTE UNKNOWN 12/MAY/2022.)
     Dates: end: 20220512
  167. DOXORUBICIN [Suspect]
     Active Substance: DOXORUBICIN
     Dosage: UNK, CYCLIC (6 CYCLE, RCHOP CHEMO - DOSE), RCHOP CHEMO - DOSE AND EXACT ROUTE NOT KNOWN.
     Dates: end: 20220512
  168. DOXORUBICIN [Suspect]
     Active Substance: DOXORUBICIN
     Dosage: UNK, CYCLIC (6 CYCLE, RCHOP CHEMO - DOSE)
     Dates: end: 20220512
  169. DOXORUBICIN [Suspect]
     Active Substance: DOXORUBICIN
     Dosage: UNK, CYCLIC (6 CYCLE, RCHOP CHEMO - DOSE)UNK
     Dates: end: 20220512
  170. DOXORUBICIN [Suspect]
     Active Substance: DOXORUBICIN
     Dosage: UNK, CYCLIC (6 CYCLE, RCHOP CHEMO - DOSE)
     Dates: end: 20220512
  171. DOXORUBICIN [Suspect]
     Active Substance: DOXORUBICIN
     Dosage: RCHOP CHEMO - DOSE AND EXACT ROUTE NOT KNOWN. CYCLIC (6 CYCLE, RCHOP CHEMO - DOSE), RCHOP CHEMO- DOS
     Route: 065
     Dates: end: 20220512
  172. DOXORUBICIN [Suspect]
     Active Substance: DOXORUBICIN
     Dosage: ^DOSAGE FORM: INJECTION, CYCLIC (6 CYCLE, RCHOP CHEMO - DOSE), RCHOP CHEMO - DOSE AND EXACT ROUTE NO
     Route: 065
     Dates: end: 20220512
  173. DOXORUBICIN [Suspect]
     Active Substance: DOXORUBICIN
     Dosage: RCHOP CHEMO - DOSE AND EXACT ROUTE NOT KNOWN. CYCLIC (6 CYCLE, RCHOP CHEMO - DOSE)
     Route: 065
     Dates: end: 20220512
  174. DOXORUBICIN [Suspect]
     Active Substance: DOXORUBICIN
     Dosage: DOSAGE FORM: INJECTION, CYCLIC (6 CYCLE, RCHOP CHEMO - DOSE), RCHOP CHEMO - DOSE AND EXACT ROUTE NOT
     Route: 065
     Dates: end: 20220512
  175. DOXORUBICIN [Suspect]
     Active Substance: DOXORUBICIN
     Indication: B-cell lymphoma
     Dosage: RCHOP CHEMO; ; ADDITIONAL INFO: RCHOP CHEMO - DOSE AND EXACT ROUTE NOT KNOWN.
     Dates: end: 20220512
  176. DOXORUBICIN [Suspect]
     Active Substance: DOXORUBICIN
     Dosage: DOSE:1, CYCLE/ RCHOP CHEMO - DOSE AND EXACT ROUTE NOT KNOWN CYCLIC (6 CYCLE, RCHOP CHEMO - DOSE, ...
     Dates: end: 20220512
  177. DOXORUBICIN [Suspect]
     Active Substance: DOXORUBICIN
     Dosage: UNK, CYCLIC (6 CYCLE, RCHOP CHEMO - DOSE) DOSAGE FORM: INJECTION; ; ADDITIONAL INFO: RCHOP CHEMO - D
     Dates: end: 20220512
  178. DOXORUBICIN [Suspect]
     Active Substance: DOXORUBICIN
     Dosage: UNK UNK, CYCLIC; ; ADDITIONAL INFO: RCHOP CHEMO - DOSE AND EXACT ROUTE NOT KNOWN.
     Dates: end: 20220512
  179. DOXORUBICIN [Suspect]
     Active Substance: DOXORUBICIN
     Dosage: UNK, CYCLIC (6 CYCLE RCHOP CHEMO- DOSE AND ROUTE UNKNOWN 12/MAY/2022.); ; ADDITIONAL INFO: RCHOP CHE
     Dates: end: 20220512
  180. DOXORUBICIN [Suspect]
     Active Substance: DOXORUBICIN
     Dosage: UNK (RCHOP CHEMO - DOSE AND EXACT ROUTE NOT KNOWN); ; ADDITIONAL INFO: RCHOP CHEMO - DOSE AND EXACT
     Dates: end: 20220512
  181. DOXORUBICIN [Suspect]
     Active Substance: DOXORUBICIN
     Dosage: UNK; ; ADDITIONAL INFO: RCHOP CHEMO - DOSE AND EXACT ROUTE NOT KNOWN.
     Dates: end: 20220512
  182. DOXORUBICIN [Suspect]
     Active Substance: DOXORUBICIN
     Dosage: UNK, CYCLIC (6 CYCLE, RCHOP CHEMO - DOSE) DOSAGE FORM: INJECTION; ; ADDITIONAL INFO: RCHOP CHEMO - D
     Dates: end: 20220512
  183. DOXORUBICIN [Suspect]
     Active Substance: DOXORUBICIN
     Dosage: UNK, CYCLIC (6 CYCLE, RCHOP CHEMO - DOSE) DOSAGE FORM: INJECTION; ; ADDITIONAL INFO: RCHOP CHEMO - D
     Dates: end: 20220512
  184. DOXORUBICIN [Suspect]
     Active Substance: DOXORUBICIN
     Dosage: UNK, CYCLIC (6 CYCLE, RCHOP CHEMO - DOSE) DOSAGE FORM: INJECTION; ; ADDITIONAL INFO: RCHOP CHEMO - D
     Dates: end: 20220512
  185. DOXORUBICIN [Suspect]
     Active Substance: DOXORUBICIN
     Dosage: UNK, CYCLIC (6 CYCLE, RCHOP CHEMO - DOSE) DOSAGE FORM: INJECTION; ; ADDITIONAL INFO: RCHOP CHEMO - D
     Dates: end: 20220512
  186. DOXORUBICIN [Suspect]
     Active Substance: DOXORUBICIN
     Dosage: UNK, CYCLIC (6 CYCLE, RCHOP CHEMO - DOSE), RCHOP CHEMO - DOSE AND EXACT ROUTE NOT KNOWN; ; ADDITIONA
     Dates: end: 20220512
  187. DOXORUBICIN [Suspect]
     Active Substance: DOXORUBICIN
     Dosage: RCHOP CHEMO - DOSE AND EXACT ROUTE NOT KNOWN;/DOSE), MOST RECENT DOSE ON 12/MAY/2022. UNK, CYCLIC (6
     Dates: end: 20220512
  188. DOXORUBICIN [Suspect]
     Active Substance: DOXORUBICIN
     Dosage: MOST RECENT DOSE ON 12/MAY/2022; ;
     Dates: end: 20220512
  189. DOXORUBICIN [Suspect]
     Active Substance: DOXORUBICIN
     Dosage: UNK, CYCLIC (6 CYCLE, RCHOP CHEMO - DOSE) DOSAGE FORM: INJECTION
  190. DOXORUBICIN [Suspect]
     Active Substance: DOXORUBICIN
     Dosage: UNK, CYCLIC (6 CYCLE, RCHOP CHEMO - DOSE)
     Dates: end: 20220512
  191. DOXORUBICIN [Suspect]
     Active Substance: DOXORUBICIN
     Indication: B-cell lymphoma
     Dosage: RCHOP CHEMO - DOSE AND EXACT ROUTE NOT KNOWN. UNK, CYCLIC (6 CYCLE, RCHOP CHEMO - DOSE)
     Dates: end: 20220512
  192. DOXORUBICIN [Suspect]
     Active Substance: DOXORUBICIN
     Dosage: UNK, CYCLIC (6 CYCLE RCHOP CHEMO- DOSE AND ROUTE UNKNOWN 12/MAY/2022)
  193. DOXORUBICIN [Suspect]
     Active Substance: DOXORUBICIN
     Dosage: UNK (MOST RECENT DOSE ON 12/MAY/2022)
  194. DOXORUBICIN [Suspect]
     Active Substance: DOXORUBICIN
     Dosage: UNK UNK, (DOSE:1, CYCLE/ RCHOP CHEMO - DOSE AND EXACT ROUTE NOT KNOWN CYCLIC (6 CYCLE, RCHOP CHEMO -
  195. DOXORUBICIN [Suspect]
     Active Substance: DOXORUBICIN
     Dosage: UNK
  196. DOXORUBICIN [Suspect]
     Active Substance: DOXORUBICIN
     Dosage: UNK, (6 CYCLE, RCHOP CHEMO - DOSE) DOSAGE FORM: INJECTION)
  197. DOXORUBICIN [Suspect]
     Active Substance: DOXORUBICIN
     Dosage: DOSAGE FORM: INJECTION, CYCLIC (6 CYCLE, RCHOP CHEMO - DOSE), RCHOP CHEMO - DOSE AND EXACT ROUTE NOT
  198. DOXORUBICIN [Suspect]
     Active Substance: DOXORUBICIN
     Dosage: UNK (RCHOP CHEMO)
  199. DOXORUBICIN [Suspect]
     Active Substance: DOXORUBICIN
     Dosage: UNK (RCHOP CHEMO - DOSE AND EXACT ROUTE NOT KNOWN)
  200. DOXORUBICIN [Suspect]
     Active Substance: DOXORUBICIN
     Dosage: UNK (RCHOP CHEMO - DOSE AND EXACT ROUTE NOT KNOWN)
  201. DOXORUBICIN [Suspect]
     Active Substance: DOXORUBICIN
     Dosage: UNK, CYCLIC (6 CYCLE, RCHOP CHEMO - DOSE) DOSAGE FORM: INJECTION)
  202. DOXORUBICIN [Suspect]
     Active Substance: DOXORUBICIN
     Dosage: UNK, CYCLIC
  203. DOXORUBICIN [Suspect]
     Active Substance: DOXORUBICIN
     Dosage: UNK, CYCLIC (6 CYCLE, RCHOP CHEMO - DOSE)
  204. DOXORUBICIN [Suspect]
     Active Substance: DOXORUBICIN
     Dosage: UNK, CYCLIC (6 CYCLE, RCHOP CHEMO - DOSE)
  205. DOXORUBICIN [Suspect]
     Active Substance: DOXORUBICIN
     Dosage: 1 CYCLICAL, CYCLIC (6 CYCLE, RCHOP CHEMO - DOSE) RCHOP CHEMO - DOSE AND EXACT ROUTE NOT KNOWN
     Dates: end: 20220512

REACTIONS (10)
  - Cerebellar syndrome [Unknown]
  - Dysarthria [Unknown]
  - Condition aggravated [Unknown]
  - Disease progression [Unknown]
  - Lethargy [Unknown]
  - Abnormal behaviour [Unknown]
  - Balance disorder [Unknown]
  - Confusional state [Unknown]
  - Back pain [Unknown]
  - Off label use [Unknown]

NARRATIVE: CASE EVENT DATE: 20220511
